FAERS Safety Report 4602967-5 (Version None)
Quarter: 2005Q1

REPORT INFORMATION
  Report Type: 
  Country: None (occurrence: None)
  Receive Date: 20050307
  Receipt Date: 20050223
  Transmission Date: 20050727
  Serious: Yes (Other)
  Sender: FDA-Public Use
  Company Number: CHNY2005DE00500

PATIENT
  Age: 44 Year
  Sex: Female
  Weight: 59 kg

DRUGS (9)
  1. NICOTINE [Suspect]
     Indication: SMOKING CESSATION THERAPY
     Dosage: SEE IMAGE
     Route: 062
     Dates: start: 20050108, end: 20050114
  2. NICOTINE [Suspect]
     Indication: SMOKING CESSATION THERAPY
     Dosage: SEE IMAGE
     Route: 062
     Dates: start: 20050115, end: 20050118
  3. L-DOPA (LEVODOPA) [Concomitant]
  4. BESPAR (BUSPIRONE HYDROCHLORIDE) [Concomitant]
  5. REQUIP [Concomitant]
  6. NACOM-SLOW RELEASE (CARBIDOPA, LEVODOPA) [Concomitant]
  7. ISICOM (CARBIDOPA, LEVODOPA) [Concomitant]
  8. AKINETON [Concomitant]
  9. THYRONAJOD (LEVOTHYROXINE SODIUM, POTASSIUM IODIDE) [Concomitant]

REACTIONS (5)
  - ANXIETY [None]
  - DRUG EFFECT DECREASED [None]
  - HYPOAESTHESIA [None]
  - MUSCLE SPASMS [None]
  - PANIC ATTACK [None]
